FAERS Safety Report 10308956 (Version 3)
Quarter: 2015Q1

REPORT INFORMATION
  Report Type: Report from Study
  Country: CA (occurrence: CA)
  Receive Date: 20140716
  Receipt Date: 20150212
  Transmission Date: 20150720
  Serious: Yes (Other)
  Sender: FDA-Public Use
  Company Number: CA-JNJFOC-20140708533

PATIENT
  Age: 52 Year
  Sex: Male
  Weight: 102.6 kg

DRUGS (1)
  1. REMICADE [Suspect]
     Active Substance: INFLIXIMAB
     Indication: PSORIASIS
     Route: 042
     Dates: start: 20140506

REACTIONS (2)
  - Skin cancer [Unknown]
  - Skin lesion [Unknown]

NARRATIVE: CASE EVENT DATE: 20141127
